FAERS Safety Report 6501342-6 (Version None)
Quarter: 2009Q4

REPORT INFORMATION
  Report Type: 
  Country: None (occurrence: None)
  Receive Date: 20091216
  Receipt Date: 20091210
  Transmission Date: 20100525
  Serious: Yes (Hospitalization)
  Sender: FDA-Public Use
  Company Number: JP-EISAI INC.-E2090-00868-SPO-JP

PATIENT
  Sex: Female

DRUGS (1)
  1. EXCEGRAN [Suspect]
     Route: 048
     Dates: start: 20091016, end: 20091028

REACTIONS (1)
  - GENERALISED ERYTHEMA [None]
